FAERS Safety Report 8350322-7 (Version None)
Quarter: 2012Q2

REPORT INFORMATION
  Report Type: 
  Country: None (occurrence: None)
  Receive Date: 20120510
  Receipt Date: 20120427
  Transmission Date: 20120825
  Serious: Yes (Other)
  Sender: FDA-Public Use
  Company Number: FR-CELGENEUS-056-21880-12043168

PATIENT
  Age: 80 Year
  Sex: Female

DRUGS (2)
  1. REVLIMID [Suspect]
     Route: 048
  2. DEXAMETHASONE [Suspect]
     Route: 065

REACTIONS (3)
  - ENCEPHALOPATHY [None]
  - VESTIBULAR DISORDER [None]
  - NERVOUS SYSTEM DISORDER [None]
